FAERS Safety Report 4908421-5 (Version None)
Quarter: 2006Q1

REPORT INFORMATION
  Report Type: 
  Country: None (occurrence: None)
  Receive Date: 20060210
  Receipt Date: 20050613
  Transmission Date: 20060701
  Serious: No
  Sender: FDA-Public Use
  Company Number: US-GLAXOSMITHKLINE-A0562663A

PATIENT
  Sex: Male

DRUGS (3)
  1. PAXIL CR [Suspect]
     Indication: ANXIETY
     Route: 048
     Dates: start: 20030101
  2. INDERAL [Suspect]
     Route: 065
  3. HYZAAR [Suspect]
     Route: 065

REACTIONS (7)
  - ABDOMINAL PAIN [None]
  - ABNORMAL DREAMS [None]
  - DRUG WITHDRAWAL SYNDROME [None]
  - EYE PAIN [None]
  - NAUSEA [None]
  - VISION BLURRED [None]
  - WEIGHT INCREASED [None]
